FAERS Safety Report 22117242 (Version 2)
Quarter: 2023Q2

REPORT INFORMATION
  Report Type: Report from Study
  Country: US (occurrence: US)
  Receive Date: 20230320
  Receipt Date: 20230413
  Transmission Date: 20230722
  Serious: Yes (Other)
  Sender: FDA-Public Use
  Company Number: US-TAKEDA-2022TUS038035

PATIENT
  Sex: Female

DRUGS (2)
  1. IXAZOMIB [Suspect]
     Active Substance: IXAZOMIB
     Indication: Plasma cell myeloma
     Dosage: 4 MILLIGRAM
     Route: 065
     Dates: start: 20220505
  2. IXAZOMIB [Suspect]
     Active Substance: IXAZOMIB
     Indication: Bone cancer

REACTIONS (4)
  - Spinal fracture [Unknown]
  - Feeling abnormal [Unknown]
  - Malaise [Unknown]
  - Product dose omission issue [Unknown]
